FAERS Safety Report 6688735-1 (Version None)
Quarter: 2010Q2

REPORT INFORMATION
  Report Type: 
  Country: None (occurrence: None)
  Receive Date: 20100420
  Receipt Date: 20100413
  Transmission Date: 20101027
  Serious: Yes (Death, Hospitalization)
  Sender: FDA-Public Use
  Company Number: B0628027A

PATIENT
  Sex: Male

DRUGS (10)
  1. HYCAMTIN [Suspect]
     Dosage: 4.5MG PER DAY
     Route: 048
     Dates: start: 20091231
  2. METHRAZONE [Concomitant]
     Dosage: 5MG PER DAY
  3. DEXAMETHASONE [Concomitant]
     Dosage: 4MG PER DAY
     Route: 048
  4. ZOPICLONE [Concomitant]
     Dosage: 7.5MG AT NIGHT
  5. FUROSEMIDE [Concomitant]
     Dosage: 40MG PER DAY
  6. INFUMORPH [Concomitant]
     Dosage: 60MG TWICE PER DAY
  7. GABAPENTIN [Concomitant]
     Dosage: 900MG THREE TIMES PER DAY
  8. DICLOFENAC [Concomitant]
     Dosage: 50MG THREE TIMES PER DAY
  9. OMEPRAZOLE [Concomitant]
     Dosage: 20MG PER DAY
  10. CLONAZEPAM [Concomitant]
     Dosage: 2MG AT NIGHT

REACTIONS (1)
  - INTESTINAL PERFORATION [None]
